FAERS Safety Report 17288539 (Version 1)
Quarter: 2020Q1

REPORT INFORMATION
  Report Type: Spontaneous
  Country: US (occurrence: US)
  Receive Date: 20200120
  Receipt Date: 20200120
  Transmission Date: 20200409
  Serious: Yes (Hospitalization, Other)
  Sender: FDA-Public Use
  Company Number: US-PFIZER INC-2020021100

PATIENT
  Age: 83 Year
  Sex: Female

DRUGS (2)
  1. LOSARTAN. [Suspect]
     Active Substance: LOSARTAN
     Indication: BLOOD PRESSURE ABNORMAL
     Dosage: 100 MG, DAILY
     Route: 048
  2. CELEBREX [Suspect]
     Active Substance: CELECOXIB
     Indication: PAIN
     Dosage: 200 MG, AS NEEDED
     Route: 048

REACTIONS (6)
  - Renal impairment [Unknown]
  - Pain [Not Recovered/Not Resolved]
  - Neoplasm [Unknown]
  - Bursitis [Unknown]
  - Arthritis [Unknown]
  - Body height decreased [Unknown]
